FAERS Safety Report 9648054 (Version 1)
Quarter: 2013Q4

REPORT INFORMATION
  Report Type: Spontaneous
  Country: US (occurrence: None)
  Receive Date: 20131024
  Receipt Date: 20131024
  Transmission Date: 20140711
  Serious: Yes (Disabling, Other)
  Sender: FDA-Public Use
  Company Number: None

PATIENT
  Age: 48 Year
  Sex: Male

DRUGS (3)
  1. PEG 3350 [Suspect]
     Indication: COLONOSCOPY
     Route: 048
     Dates: start: 20130625, end: 20130625
  2. METFORMIN [Concomitant]
  3. GLYBURIDE [Concomitant]

REACTIONS (2)
  - Vocal cord paralysis [None]
  - Upper respiratory tract infection [None]
